FAERS Safety Report 15682052 (Version 1)
Quarter: 2018Q4

REPORT INFORMATION
  Report Type: Spontaneous
  Country: US (occurrence: US)
  Receive Date: 20181203
  Receipt Date: 20181203
  Transmission Date: 20190205
  Serious: No
  Sender: FDA-Public Use
  Company Number: None

PATIENT
  Sex: Male

DRUGS (1)
  1. PALIPERIDONE 4.5 MG [Suspect]
     Active Substance: PALIPERIDONE

REACTIONS (2)
  - Gynaecomastia [None]
  - Breast discharge [None]
